FAERS Safety Report 5137468-1 (Version None)
Quarter: 2006Q4

REPORT INFORMATION
  Report Type: 
  Country: None (occurrence: None)
  Receive Date: 20061030
  Receipt Date: 20051108
  Transmission Date: 20070319
  Serious: No
  Sender: FDA-Public Use
  Company Number: US-GLAXOSMITHKLINE-A0581413A

PATIENT
  Age: 81 Year
  Sex: Female

DRUGS (3)
  1. ADVAIR HFA [Suspect]
     Indication: BRONCHITIS
     Dosage: 1PUFF TWICE PER DAY
     Route: 055
     Dates: start: 20050301
  2. CLARINEX [Concomitant]
  3. KETEK [Concomitant]

REACTIONS (10)
  - COUGH [None]
  - DRY MOUTH [None]
  - DYSGEUSIA [None]
  - DYSPHONIA [None]
  - DYSPNOEA [None]
  - INCREASED UPPER AIRWAY SECRETION [None]
  - MALAISE [None]
  - NAUSEA [None]
  - THROAT IRRITATION [None]
  - TONGUE COATED [None]
